FAERS Safety Report 9998594 (Version 1)
Quarter: 2014Q1

REPORT INFORMATION
  Report Type: Spontaneous
  Country: US (occurrence: US)
  Receive Date: 20140312
  Receipt Date: 20140312
  Transmission Date: 20141002
  Serious: No
  Sender: FDA-Public Use
  Company Number: US-BIOGENIDEC-2014BI019006

PATIENT
  Age: 53 Year
  Sex: Female

DRUGS (1)
  1. TECFIDERA [Suspect]
     Indication: MULTIPLE SCLEROSIS
     Route: 048

REACTIONS (13)
  - Chills [Unknown]
  - Hyperhidrosis [Unknown]
  - Peripheral coldness [Unknown]
  - Feeling abnormal [Unknown]
  - Gastric disorder [Unknown]
  - Dysuria [Unknown]
  - Fluid retention [Unknown]
  - Hypoaesthesia [Unknown]
  - Pyrexia [Unknown]
  - Respiratory tract infection [Unknown]
  - Post procedural infection [Unknown]
  - Endodontic procedure [Unknown]
  - Nausea [Unknown]
